FAERS Safety Report 9104999 (Version 2)
Quarter: 2013Q2

REPORT INFORMATION
  Report Type: Spontaneous
  Country: US (occurrence: US)
  Receive Date: 20130220
  Receipt Date: 20130530
  Transmission Date: 20140414
  Serious: Yes (Hospitalization)
  Sender: FDA-Public Use
  Company Number: US-ELI_LILLY_AND_COMPANY-US201302004037

PATIENT
  Age: 70 Year
  Sex: Female

DRUGS (11)
  1. FORTEO [Suspect]
     Indication: OSTEOPOROSIS
     Dosage: 20 UG, QD
     Dates: start: 201212, end: 20130409
  2. CARVEDILOL [Concomitant]
     Dosage: 12.5 MG, UNK
  3. CRESTOR [Concomitant]
     Dosage: 20 MG, UNK
  4. PROTONIX [Concomitant]
     Dosage: 30 MG, UNK
  5. HYDROCODONE BITARTRATE AND ACETAMINOPHEN [Concomitant]
     Dosage: UNK
  6. TRAMADOL [Concomitant]
     Dosage: 50 MG, PRN
  7. VITAMIN D [Concomitant]
     Dosage: 5000 IU, UNK
  8. CALCIUM [Concomitant]
     Dosage: 1200 MG, UNK
  9. PROZAC [Concomitant]
  10. PREVACID [Concomitant]
  11. COREG [Concomitant]

REACTIONS (5)
  - Rib fracture [Unknown]
  - Rotator cuff syndrome [Unknown]
  - Pain [Unknown]
  - Clavicle fracture [Unknown]
  - Weight decreased [Unknown]
